FAERS Safety Report 17440458 (Version 1)
Quarter: 2020Q1

REPORT INFORMATION
  Report Type: Spontaneous
  Country: US (occurrence: US)
  Receive Date: 20200206
  Receipt Date: 20200206
  Transmission Date: 20200409
  Serious: No
  Sender: FDA-Public Use
  Company Number: None

PATIENT
  Age: 47 Year
  Sex: Male

DRUGS (1)
  1. EPCLUSA [Suspect]
     Active Substance: SOFOSBUVIR\VELPATASVIR
     Indication: CHRONIC HEPATITIS C
     Dosage: OTHER DOSE: 400/100MG
     Route: 048
     Dates: start: 20191121

REACTIONS (2)
  - Teething [None]
  - Gingival pain [None]

NARRATIVE: CASE EVENT DATE: 20191121
